FAERS Safety Report 5825812-9 (Version None)
Quarter: 2008Q3

REPORT INFORMATION
  Report Type: 
  Country: None (occurrence: None)
  Receive Date: 20080729
  Receipt Date: 20080724
  Transmission Date: 20090109
  Serious: Yes (Life-Threatening, Hospitalization)
  Sender: FDA-Public Use
  Company Number: US-JNJFOC-20080706294

PATIENT
  Age: 5 Decade
  Sex: Male
  Weight: 65 kg

DRUGS (10)
  1. DOXIL [Suspect]
     Dosage: ADMINISTERED DAY 1 (FIFTH CYCLE) 72MG DOSE
     Route: 042
  2. DOXIL [Suspect]
     Indication: LYMPHOMA AIDS RELATED
     Dosage: CYCLE 1
     Route: 042
  3. RITUXIMAB [Suspect]
     Dosage: TOTAL DOSE ADMINISTERED 675MG
     Route: 042
  4. RITUXIMAB [Suspect]
     Indication: LYMPHOMA AIDS RELATED
     Dosage: CYCLE 1
     Route: 042
  5. CYCLOPHOSPHAMIDE [Suspect]
     Dosage: TOTAL DOSE ADMINISTERED 1350MG
     Route: 042
  6. CYCLOPHOSPHAMIDE [Suspect]
     Indication: LYMPHOMA AIDS RELATED
     Dosage: CYCLE 1
     Route: 042
  7. VINCRISTINE [Suspect]
     Route: 042
  8. VINCRISTINE [Suspect]
     Indication: LYMPHOMA AIDS RELATED
     Dosage: CYCLE 1
     Route: 042
  9. PREDNISONE [Suspect]
     Dosage: TOTAL DOSE ADMINISTERED 500MG
     Route: 048
  10. PREDNISONE [Suspect]
     Indication: LYMPHOMA AIDS RELATED
     Dosage: CYCLE 1
     Route: 048

REACTIONS (1)
  - ABDOMINAL ABSCESS [None]
